FAERS Safety Report 8642982 (Version 6)
Quarter: 2012Q4

REPORT INFORMATION
  Report Type: Report from Study
  Country: JP (occurrence: JP)
  Receive Date: 20120629
  Receipt Date: 20121128
  Transmission Date: 20130627
  Serious: Yes (Other)
  Sender: FDA-Public Use
  Company Number: JP-JNJFOC-20120611852

PATIENT
  Age: 15 Year
  Sex: Female
  Weight: 37 kg

DRUGS (14)
  1. DUROTEP MT [Suspect]
     Indication: PAIN
     Route: 062
     Dates: start: 20111118, end: 20120127
  2. TRAMCET [Suspect]
     Indication: PAIN
     Route: 048
     Dates: start: 20110817, end: 20111014
  3. TRAMCET [Suspect]
     Indication: PAIN
     Route: 048
     Dates: start: 20110815, end: 20110816
  4. TRAMCET [Suspect]
     Indication: PAIN
     Route: 048
     Dates: start: 20110812, end: 20110814
  5. LYRICA [Concomitant]
     Indication: PAIN
     Route: 048
     Dates: start: 20110714, end: 20110720
  6. LYRICA [Concomitant]
     Indication: PAIN
     Route: 048
     Dates: start: 20110722, end: 20111117
  7. LYRICA [Concomitant]
     Indication: PAIN
     Route: 048
     Dates: start: 20111118, end: 20120217
  8. IMIPRAMINE HYDROCHLORIDE [Concomitant]
     Indication: PAIN
     Route: 048
     Dates: start: 20110715
  9. MAGNESIUM OXIDE [Concomitant]
     Indication: PROPHYLAXIS
     Route: 048
     Dates: start: 20110812
  10. LAXOBERON [Concomitant]
     Indication: PROPHYLAXIS
     Route: 048
     Dates: start: 20111209
  11. NOVAMIN [Concomitant]
     Indication: PROPHYLAXIS
     Route: 048
     Dates: start: 20110812, end: 20110826
  12. MEXITIL [Concomitant]
     Indication: PAIN
     Route: 048
     Dates: start: 20120106, end: 20120203
  13. YOKUKAN-SAN [Concomitant]
     Route: 048
     Dates: start: 20120127, end: 20120511
  14. RIVOTRIL [Concomitant]
     Indication: DYSKINESIA
     Route: 048
     Dates: start: 20111007, end: 20111014

REACTIONS (6)
  - Hallucination, auditory [Recovered/Resolved]
  - Dyskinesia [Recovered/Resolved]
  - Hallucination [Recovered/Resolved]
  - Constipation [Recovering/Resolving]
  - Nausea [Recovering/Resolving]
  - Vomiting [Recovering/Resolving]
